FAERS Safety Report 21033284 (Version 1)
Quarter: 2022Q3

REPORT INFORMATION
  Report Type: Spontaneous
  Country: US (occurrence: US)
  Receive Date: 20220701
  Receipt Date: 20220701
  Transmission Date: 20221027
  Serious: Yes (Death, Hospitalization)
  Sender: FDA-Public Use
  Company Number: US-PERRIGO-22US009041

PATIENT
  Age: 67 Year
  Sex: Male

DRUGS (1)
  1. ACETAMINOPHEN [Suspect]
     Active Substance: ACETAMINOPHEN
     Indication: Overdose
     Dosage: UNK
     Route: 048

REACTIONS (3)
  - Overdose [Fatal]
  - Hepatotoxicity [Fatal]
  - International normalised ratio increased [Fatal]
